FAERS Safety Report 23994125 (Version 1)
Quarter: 2024Q2

REPORT INFORMATION
  Report Type: Other
  Country: TR (occurrence: TR)
  Receive Date: 20240620
  Receipt Date: 20240620
  Transmission Date: 20240716
  Serious: Yes (Life-Threatening, Hospitalization, Other)
  Sender: FDA-Public Use
  Company Number: TR-B.Braun Medical Inc.-2158348

PATIENT
  Age: 7 Year
  Sex: Female

DRUGS (1)
  1. METRONIDAZOLE [Suspect]
     Active Substance: METRONIDAZOLE
     Indication: Colitis

REACTIONS (6)
  - Vitamin B1 decreased [Recovered/Resolved]
  - Product administered to patient of inappropriate age [Recovered/Resolved]
  - Off label use [Recovered/Resolved]
  - Vitamin B1 deficiency [Recovered/Resolved]
  - Wernicke^s encephalopathy [Recovered/Resolved]
  - Lactic acidosis [Recovered/Resolved]
